FAERS Safety Report 6819575-8 (Version None)
Quarter: 2010Q3

REPORT INFORMATION
  Report Type: 
  Country: None (occurrence: None)
  Receive Date: 20100701
  Receipt Date: 20090529
  Transmission Date: 20110219
  Serious: No
  Sender: FDA-Public Use
  Company Number: US-TEVA-196540USA

PATIENT
  Sex: Female
  Weight: 81.72 kg

DRUGS (7)
  1. AZILECT [Suspect]
     Indication: PARKINSON'S DISEASE
     Route: 048
     Dates: start: 20090201, end: 20090401
  2. PRAMIPEXOLE DIHYDROCHLORIDE [Concomitant]
  3. PAROXETINE HCL [Concomitant]
  4. LEVOTHYROXINE SODIUM [Concomitant]
  5. CLONAZEPAM [Concomitant]
  6. ENTACAPONE [Concomitant]
  7. SINEMET [Concomitant]

REACTIONS (1)
  - URTICARIA [None]
